FAERS Safety Report 7816154-0 (Version None)
Quarter: 2011Q4

REPORT INFORMATION
  Report Type: 
  Country: None (occurrence: None)
  Receive Date: 20111015
  Receipt Date: 20110923
  Transmission Date: 20120403
  Serious: Yes (Other)
  Sender: FDA-Public Use
  Company Number: DE-ROCHE-GNE322730

PATIENT
  Sex: Female

DRUGS (5)
  1. SPIRIVA [Concomitant]
  2. SINGULAIR [Concomitant]
     Dates: start: 20060101
  3. XOLAIR [Suspect]
     Dosage: 450 TO 600 MG, Q2W
     Route: 058
     Dates: start: 20110331
  4. XOLAIR [Suspect]
     Indication: ASTHMA
     Dosage: 300 TO 400 MG, Q2W
     Route: 058
     Dates: start: 20070101, end: 20110331
  5. ATMADISC [Concomitant]
     Dosage: 50/500 MG
     Dates: start: 20000101

REACTIONS (2)
  - MOUTH HAEMORRHAGE [None]
  - C-REACTIVE PROTEIN INCREASED [None]
